FAERS Safety Report 9031731 (Version 2)
Quarter: 2013Q1

REPORT INFORMATION
  Report Type: Spontaneous
  Country: US (occurrence: US)
  Receive Date: 20130124
  Receipt Date: 20130320
  Transmission Date: 20140127
  Serious: Yes (Hospitalization)
  Sender: FDA-Public Use
  Company Number: US-BAYER-2013-005151

PATIENT
  Sex: Female

DRUGS (3)
  1. BAYER GENUINE ASPIRIN ORIGINAL STRENGTH [Suspect]
     Indication: PAIN
  2. MOTRIN [Suspect]
     Indication: PAIN
  3. LYRICA [Suspect]

REACTIONS (1)
  - Ulcer [None]
